FAERS Safety Report 4960609-3 (Version None)
Quarter: 2006Q2

REPORT INFORMATION
  Report Type: 
  Country: None (occurrence: None)
  Receive Date: 20060403
  Receipt Date: 20050926
  Transmission Date: 20061013
  Serious: Yes (Hospitalization)
  Sender: FDA-Public Use
  Company Number: US-MERCK-0509USA03770

PATIENT
  Age: 58 Year
  Sex: Female
  Weight: 91 kg

DRUGS (1)
  1. VIOXX [Suspect]
     Indication: ARTHRITIS
     Route: 048
     Dates: start: 20000714, end: 20040801

REACTIONS (8)
  - ARTHRALGIA [None]
  - ASTHENIA [None]
  - BLADDER DISORDER [None]
  - CARDIOVASCULAR DISORDER [None]
  - CHEST PAIN [None]
  - HYPOTHYROIDISM [None]
  - PAIN IN EXTREMITY [None]
  - THROMBOSIS [None]
